FAERS Safety Report 9463565 (Version 3)
Quarter: 2013Q4

REPORT INFORMATION
  Report Type: Spontaneous
  Country: US (occurrence: US)
  Receive Date: 20130819
  Receipt Date: 20131101
  Transmission Date: 20140711
  Serious: Yes (Death, Other)
  Sender: FDA-Public Use
  Company Number: US-BRISTOL-MYERS SQUIBB COMPANY-18553693

PATIENT
  Age: 65 Year
  Sex: Male

DRUGS (14)
  1. BYETTA PEN DISPOSABLE [Suspect]
     Indication: TYPE 2 DIABETES MELLITUS
     Dosage: 10 MCGLO.04 ML SUBCUTANEOUS?LAST DOSE:15NOV2010
     Dates: start: 20090430, end: 20101115
  2. JANUVIA [Concomitant]
     Dates: start: 20090121, end: 20090421
  3. FOSAMAX [Concomitant]
     Dosage: TABS
     Route: 048
  4. AVODART [Concomitant]
     Dosage: LAST DOSE:15NOV2010
     Route: 048
  5. VICODIN [Concomitant]
     Dosage: 7.5-750 RNG ORAL PER TABLET?TAKE I TAB BY MOUTH EVERY SIX HOURS, AS NEEDED.
     Route: 048
  6. ULTRAM [Concomitant]
     Indication: PAIN
     Dosage: TAKE 50 MG BY MOUTH EVERY SIX HOURS, AS NEEDED?LAST DOSE:11/16/10
     Route: 048
  7. ZOFRAN [Concomitant]
     Dosage: LAST DOSE:11/16/10.?DISINTEGRATING TABLET?TAKE 4 MG BY MOUTH EVERY EIGHT HOURS AS NEEDED,
     Route: 048
  8. GLUCOPHAGE [Concomitant]
     Dosage: LAST DOSE:11/15/10
     Route: 048
  9. ZOCOR [Concomitant]
     Dosage: TAKE 80 MG BY MOUTH AT BEDTIME,?LAST DOSE:11/15/10
     Route: 048
  10. ACTOS [Concomitant]
     Dosage: TAKE 45 RMG BY MOUTH ONCE A DAY.?LAST DOSE:11/15/10
     Route: 048
  11. DIOVAN [Concomitant]
     Dosage: TAKE 80 MG BY MOUTH ONCE A DAY AT 1 PM.?LAST DOSE:11/15/10
     Route: 048
  12. LANTUS [Concomitant]
     Dosage: 100 UNIT/ML,INJECT 40 UNITS JUST UNDER THE SKIN ONCE A DAY.?LAST DOSE:11/15110
     Route: 058
  13. OMEPRAZOLE [Concomitant]
  14. INSULIN [Concomitant]

REACTIONS (2)
  - Pancreatic carcinoma [Fatal]
  - Hepatitis [Unknown]
